FAERS Safety Report 9209667 (Version 2)
Quarter: 2013Q2

REPORT INFORMATION
  Report Type: Spontaneous
  Country: GB (occurrence: GB)
  Receive Date: 20130404
  Receipt Date: 20130520
  Transmission Date: 20140414
  Serious: Yes (Other)
  Sender: FDA-Public Use
  Company Number: GB-JNJFOC-20121211487

PATIENT
  Sex: Male
  Weight: 85.7 kg

DRUGS (11)
  1. STELARA [Suspect]
     Indication: PSORIASIS
     Dosage: UNSPECIFIED ANTIHISTAMINES FOR THE EVENT AND E45 CREAM
     Route: 058
  2. STELARA [Suspect]
     Indication: PSORIASIS
     Dosage: UNSPECIFIED ANTIHISTAMINES FOR THE EVENT AND E45 CREAM
     Route: 058
     Dates: start: 201001
  3. STELARA [Suspect]
     Indication: PSORIASIS
     Dosage: UNSPECIFIED ANTIHISTAMINES FOR THE EVENT AND E45 CREAM
     Route: 058
  4. METFORMIN [Concomitant]
     Indication: DIABETES MELLITUS
     Route: 065
  5. THYROXINE [Concomitant]
     Indication: HYPOTHYROIDISM
     Route: 065
  6. AMLODIPINE [Concomitant]
     Indication: BIPOLAR DISORDER
     Route: 065
  7. PERICYAZINE [Concomitant]
     Indication: BIPOLAR DISORDER
     Route: 065
  8. MIRTAZAPINE [Concomitant]
     Indication: BIPOLAR DISORDER
     Route: 065
  9. CHLORPHENIRAMINE [Concomitant]
     Indication: PRODUCT USED FOR UNKNOWN INDICATION
     Route: 065
  10. LITHIUM [Concomitant]
     Indication: PRODUCT USED FOR UNKNOWN INDICATION
     Route: 065
     Dates: start: 201110, end: 2012
  11. LITHIUM [Concomitant]
     Indication: PRODUCT USED FOR UNKNOWN INDICATION
     Route: 065
     Dates: end: 201110

REACTIONS (2)
  - Psoriasis [Not Recovered/Not Resolved]
  - Hepatic function abnormal [Not Recovered/Not Resolved]
